FAERS Safety Report 18330297 (Version 2)
Quarter: 2021Q2

REPORT INFORMATION
  Report Type: Report from Study
  Country: CO (occurrence: CO)
  Receive Date: 20200930
  Receipt Date: 20210407
  Transmission Date: 20210717
  Serious: Yes (Other)
  Sender: FDA-Public Use
  Company Number: CO-JNJFOC-20200932183

PATIENT
  Age: 46 Year
  Sex: Female
  Weight: 58 kg

DRUGS (8)
  1. MACITENTAN [Suspect]
     Active Substance: MACITENTAN
     Indication: PULMONARY ARTERIAL HYPERTENSION
     Route: 048
     Dates: start: 20200211
  2. TRAMADOL. [Concomitant]
     Active Substance: TRAMADOL
  3. CAPTOPRIL. [Concomitant]
     Active Substance: CAPTOPRIL
  4. MACITENTAN [Suspect]
     Active Substance: MACITENTAN
     Route: 048
     Dates: start: 20181218
  5. BELIMUMAB [Concomitant]
     Active Substance: BELIMUMAB
  6. SILDENAFIL. [Concomitant]
     Active Substance: SILDENAFIL
  7. METHOTREXATE. [Suspect]
     Active Substance: METHOTREXATE
     Indication: PRODUCT USED FOR UNKNOWN INDICATION
     Route: 065
  8. LEVOTHYROXINE. [Concomitant]
     Active Substance: LEVOTHYROXINE

REACTIONS (6)
  - Increased appetite [Not Recovered/Not Resolved]
  - Furuncle [Not Recovered/Not Resolved]
  - Somnolence [Not Recovered/Not Resolved]
  - Discouragement [Not Recovered/Not Resolved]
  - Anaemia [Not Recovered/Not Resolved]
  - Insomnia [Not Recovered/Not Resolved]

NARRATIVE: CASE EVENT DATE: 202008
